FAERS Safety Report 9371033 (Version 26)
Quarter: 2016Q4

REPORT INFORMATION
  Report Type: Report from Study
  Country: CA (occurrence: CA)
  Receive Date: 20130627
  Receipt Date: 20161118
  Transmission Date: 20170207
  Serious: Yes (Other)
  Sender: FDA-Public Use
  Company Number: CA-ROCHE-1132723

PATIENT
  Age: 58 Year
  Sex: Male
  Weight: 78 kg

DRUGS (16)
  1. FOLIC ACID. [Concomitant]
     Active Substance: FOLIC ACID
     Route: 048
     Dates: start: 2003
  2. METHOTREXATE. [Concomitant]
     Active Substance: METHOTREXATE
     Route: 058
     Dates: start: 2003
  3. NAPROXEN. [Concomitant]
     Active Substance: NAPROXEN
  4. CLONIDINE. [Concomitant]
     Active Substance: CLONIDINE
  5. ACETYLSALICYLIC ACID [Concomitant]
     Active Substance: ASPIRIN
  6. ATENOLOL. [Concomitant]
     Active Substance: ATENOLOL
     Indication: HYPERTENSION
     Route: 048
     Dates: start: 2003
  7. PREDNISONE. [Concomitant]
     Active Substance: PREDNISONE
  8. LYRICA [Concomitant]
     Active Substance: PREGABALIN
     Indication: BACK PAIN
     Route: 048
     Dates: start: 2008
  9. QUININE [Concomitant]
     Active Substance: QUININE
  10. DIOVAN [Concomitant]
     Active Substance: VALSARTAN
     Indication: HYPERTENSION
     Dosage: 320/25 MG
     Route: 048
     Dates: start: 2003
  11. ADALAT [Concomitant]
     Active Substance: NIFEDIPINE
     Indication: HYPERTENSION
     Route: 048
     Dates: start: 2003
  12. NEXIUM [Concomitant]
     Active Substance: ESOMEPRAZOLE MAGNESIUM
  13. RASILEZ [Concomitant]
     Active Substance: ALISKIREN
  14. OXAZEPAM. [Concomitant]
     Active Substance: OXAZEPAM
     Route: 048
     Dates: start: 1993
  15. ACTONEL [Concomitant]
     Active Substance: RISEDRONATE SODIUM
     Indication: HYPERTENSION
     Route: 048
     Dates: start: 2003
  16. ACTEMRA [Suspect]
     Active Substance: TOCILIZUMAB
     Indication: RHEUMATOID ARTHRITIS
     Route: 042
     Dates: start: 20110810

REACTIONS (29)
  - Skin ulcer [Not Recovered/Not Resolved]
  - Gait disturbance [Not Recovered/Not Resolved]
  - Wound complication [Not Recovered/Not Resolved]
  - Peripheral swelling [Not Recovered/Not Resolved]
  - Musculoskeletal pain [Not Recovered/Not Resolved]
  - Limb injury [Recovering/Resolving]
  - Peripheral venous disease [Not Recovered/Not Resolved]
  - Joint swelling [Not Recovered/Not Resolved]
  - Weight decreased [Not Recovered/Not Resolved]
  - Rash [Not Recovered/Not Resolved]
  - Blood pressure increased [Unknown]
  - Bronchitis [Recovering/Resolving]
  - Oedema peripheral [Not Recovered/Not Resolved]
  - Skin mass [Not Recovered/Not Resolved]
  - Drug ineffective [Not Recovered/Not Resolved]
  - Arthralgia [Not Recovered/Not Resolved]
  - Nasopharyngitis [Not Recovered/Not Resolved]
  - Productive cough [Not Recovered/Not Resolved]
  - Cough [Not Recovered/Not Resolved]
  - Bursitis [Recovering/Resolving]
  - Erythema [Not Recovered/Not Resolved]
  - Weight increased [Unknown]
  - Increased appetite [Not Recovered/Not Resolved]
  - Joint effusion [Recovered/Resolved]
  - Blood pressure increased [Unknown]
  - Heart rate decreased [Unknown]
  - Arthralgia [Not Recovered/Not Resolved]
  - Infusion related reaction [Unknown]
  - Ulcer [Unknown]

NARRATIVE: CASE EVENT DATE: 201207
